FAERS Safety Report 7080835-X (Version None)
Quarter: 2010Q4

REPORT INFORMATION
  Report Type: 
  Country: None (occurrence: None)
  Receive Date: 20101102
  Receipt Date: 20101102
  Transmission Date: 20110411
  Serious: Yes (Other)
  Sender: FDA-Public Use
  Company Number: None

PATIENT
  Sex: Female
  Weight: 53.5244 kg

DRUGS (1)
  1. DONEPEZIL HCL [Suspect]
     Indication: AMNESIA
     Dosage: 10 MG TAB 1 DAILY ORAL
     Route: 048
     Dates: start: 20091120, end: 20100610

REACTIONS (2)
  - COGNITIVE DISORDER [None]
  - HERPES ZOSTER [None]
